FAERS Safety Report 19614177 (Version 1)
Quarter: 2021Q3

REPORT INFORMATION
  Report Type: Spontaneous
  Country: US (occurrence: US)
  Receive Date: 20210726
  Receipt Date: 20210726
  Transmission Date: 20211014
  Serious: No
  Sender: FDA-Public Use
  Company Number: None

PATIENT
  Age: 63 Year
  Sex: Male
  Weight: 92 kg

DRUGS (2)
  1. LISINOPRIL (LISINOPRIL 40MG TAB) [Suspect]
     Active Substance: LISINOPRIL
     Indication: DIABETES MELLITUS
     Route: 048
     Dates: start: 20210129, end: 20210720
  2. LISINOPRIL (LISINOPRIL 40MG TAB) [Suspect]
     Active Substance: LISINOPRIL
     Indication: HYPERTENSION
     Route: 048
     Dates: start: 20210129, end: 20210720

REACTIONS (18)
  - Seizure [None]
  - Protein urine present [None]
  - Tremor [None]
  - Blood triglycerides increased [None]
  - Blood urea increased [None]
  - White blood cell count increased [None]
  - Loss of consciousness [None]
  - Blood pressure diastolic decreased [None]
  - Balance disorder [None]
  - Blood cholesterol increased [None]
  - Blood glucose abnormal [None]
  - Blood potassium increased [None]
  - White blood cells urine positive [None]
  - Fall [None]
  - Skin laceration [None]
  - Blood creatinine increased [None]
  - Glycosylated haemoglobin increased [None]
  - Hyperkalaemia [None]

NARRATIVE: CASE EVENT DATE: 20210720
